FAERS Safety Report 10099567 (Version 3)
Quarter: 2014Q2

REPORT INFORMATION
  Report Type: Spontaneous
  Country: IT (occurrence: IT)
  Receive Date: 20140423
  Receipt Date: 20140515
  Transmission Date: 20141212
  Serious: Yes (Death)
  Sender: FDA-Public Use
  Company Number: IT-ELI_LILLY_AND_COMPANY-IT201404007130

PATIENT
  Age: 74 Year
  Sex: Female
  Weight: 100 kg

DRUGS (2)
  1. ALIMTA [Suspect]
     Indication: LUNG ADENOCARCINOMA STAGE IV
     Dosage: 750 MG, UNKNOWN
     Route: 042
     Dates: start: 20140326, end: 20140326
  2. CISPLATINO TEVA [Suspect]
     Indication: LUNG NEOPLASM MALIGNANT
     Dosage: 110 MG, UNKNOWN
     Route: 042
     Dates: start: 20140326, end: 20140326

REACTIONS (10)
  - Thrombocytopenia [Fatal]
  - Leukopenia [Fatal]
  - Febrile neutropenia [Fatal]
  - Renal failure acute [Fatal]
  - Dehydration [Unknown]
  - Diarrhoea [Unknown]
  - Hypotension [Unknown]
  - Faeces discoloured [Unknown]
  - Sopor [Unknown]
  - General physical health deterioration [Unknown]
